FAERS Safety Report 8288251-X (Version None)
Quarter: 2012Q2

REPORT INFORMATION
  Report Type: 
  Country: None (occurrence: None)
  Receive Date: 20120416
  Receipt Date: 20120305
  Transmission Date: 20120825
  Serious: Yes (Life-Threatening)
  Sender: FDA-Public Use
  Company Number: JP-TEVA-320977ISR

PATIENT
  Sex: Male
  Weight: 68.1 kg

DRUGS (10)
  1. BENDAMUSTINE [Suspect]
     Dosage: 150 DOSAGE FORMS;
     Route: 042
     Dates: start: 20110823, end: 20110824
  2. LANSOPRAZOLE [Concomitant]
     Indication: PROPHYLAXIS
     Dosage: 1 TABLET;
     Dates: start: 20110406, end: 20111017
  3. ALLOPURINOL [Concomitant]
     Indication: PROPHYLAXIS
     Dosage: 3 TABLET;
     Dates: start: 20110406, end: 20111017
  4. REBAMIPIDE [Concomitant]
     Indication: PROPHYLAXIS
     Dosage: 3 TABLETS
     Dates: start: 20110406, end: 20111017
  5. BENDAMUSTINE [Suspect]
     Dosage: 150 DOSAGE FORMS;
     Route: 042
     Dates: start: 20110517, end: 20110518
  6. BENDAMUSTINE [Suspect]
     Indication: B-CELL LYMPHOMA
     Dosage: 150 DOSAGE FORMS;
     Route: 042
     Dates: start: 20110408, end: 20110409
  7. BENDAMUSTINE [Suspect]
     Dosage: 150 DOSAGE FORMS;
     Route: 042
     Dates: start: 20111005, end: 20111006
  8. POLYMYXIN B SULFATE [Concomitant]
     Indication: PROPHYLAXIS
     Dosage: 3 TABLET;
     Dates: start: 20110406, end: 20111017
  9. BENDAMUSTINE [Suspect]
     Dosage: 150 DOSAGE FORMS;
     Route: 042
     Dates: start: 20110614, end: 20110615
  10. BENDAMUSTINE [Suspect]
     Dosage: 150 DOSAGE FORMS;
     Route: 042
     Dates: start: 20110712, end: 20110713

REACTIONS (3)
  - CYTOMEGALOVIRUS CHORIORETINITIS [None]
  - WHITE BLOOD CELL COUNT DECREASED [None]
  - CYTOMEGALOVIRUS INFECTION [None]
